FAERS Safety Report 22066601 (Version 1)
Quarter: 2023Q1

REPORT INFORMATION
  Report Type: Spontaneous
  Country: None (occurrence: US)
  Receive Date: 20230306
  Receipt Date: 20230306
  Transmission Date: 20230418
  Serious: No
  Sender: FDA-Public Use
  Company Number: US-Ascend Therapeutics US, LLC-2138731

PATIENT
  Age: 58 Year
  Sex: Male

DRUGS (3)
  1. ANDROGEL [Suspect]
     Active Substance: TESTOSTERONE
     Indication: Product used for unknown indication
     Route: 061
  2. ANDROGEL [Suspect]
     Active Substance: TESTOSTERONE
     Route: 061
  3. JATENZO [Concomitant]
     Active Substance: TESTOSTERONE UNDECANOATE
     Route: 065

REACTIONS (1)
  - Blood test abnormal [Unknown]
